FAERS Safety Report 25282489 (Version 1)
Quarter: 2025Q2

REPORT INFORMATION
  Report Type: Spontaneous
  Country: US (occurrence: US)
  Receive Date: 20250508
  Receipt Date: 20250508
  Transmission Date: 20250716
  Serious: Yes (Other)
  Sender: SPECGX
  Company Number: US-SPECGX-T202402195

PATIENT
  Age: 73 Year

DRUGS (2)
  1. NALTREXONE [Suspect]
     Active Substance: NALTREXONE
     Indication: Alcoholism
     Route: 065
  2. NALTREXONE [Suspect]
     Active Substance: NALTREXONE
     Indication: Alcoholism
     Route: 065

REACTIONS (1)
  - Blood pressure increased [Unknown]
